FAERS Safety Report 10443916 (Version 1)
Quarter: 2014Q3

REPORT INFORMATION
  Report Type: Spontaneous
  Country: US (occurrence: US)
  Receive Date: 20140910
  Receipt Date: 20140910
  Transmission Date: 20150326
  Serious: No
  Sender: FDA-Public Use
  Company Number: US-TARO-2013P1020260

PATIENT
  Age: 49 Year
  Sex: Female
  Weight: 95.26 kg

DRUGS (8)
  1. WARFARIN SODIUM TABLETS USP 3MG [Suspect]
     Active Substance: WARFARIN SODIUM
     Route: 048
     Dates: start: 201310, end: 201310
  2. ANTICHOLESTEROL PRODUCT [Concomitant]
  3. ^PRILOSEC-TYPE PRODUCT^ [Concomitant]
  4. HIGH BLOOD PRESSURE TABLET [Concomitant]
  5. WARFARIN SODIUM TABLETS USP 3MG [Suspect]
     Active Substance: WARFARIN SODIUM
     Route: 048
     Dates: start: 201310
  6. WARFARIN SODIUM TABLETS USP 3MG [Suspect]
     Active Substance: WARFARIN SODIUM
     Route: 048
     Dates: start: 201309, end: 201310
  7. WARFARIN SODIUM TABLETS USP 3MG [Suspect]
     Active Substance: WARFARIN SODIUM
     Dosage: 3 MG
     Route: 048
     Dates: start: 201310, end: 201310
  8. WARFARIN SODIUM TABLETS USP 3MG [Suspect]
     Active Substance: WARFARIN SODIUM
     Route: 048
     Dates: start: 20131021, end: 20131021

REACTIONS (3)
  - International normalised ratio increased [Recovered/Resolved]
  - International normalised ratio decreased [Recovering/Resolving]
  - Product substitution issue [Unknown]

NARRATIVE: CASE EVENT DATE: 201310
